FAERS Safety Report 8955998 (Version 1)
Quarter: 2012Q4

REPORT INFORMATION
  Report Type: 
  Country: US (occurrence: US)
  Receive Date: 20121210
  Receipt Date: 20121210
  Transmission Date: 20130627
  Serious: Yes (Hospitalization, Other)
  Sender: FDA-Public Use
  Company Number: US-ELI_LILLY_AND_COMPANY-US201211008568

PATIENT
  Age: 51 Year
  Sex: Female

DRUGS (5)
  1. CYMBALTA [Suspect]
     Indication: ANXIETY
     Dosage: 60 mg, qd
     Dates: start: 2004, end: 20121118
  2. CYMBALTA [Suspect]
     Dosage: 60 mg, qd
     Dates: start: 20121126
  3. TOPAMAX [Concomitant]
  4. KLONOPIN [Concomitant]
  5. BENADRYL [Concomitant]

REACTIONS (22)
  - Respiratory failure [Unknown]
  - Benign neoplasm [Unknown]
  - Benign ovarian tumour [Unknown]
  - Dyspnoea [Unknown]
  - Systemic lupus erythematosus [Unknown]
  - Chronic obstructive pulmonary disease [Unknown]
  - Paralysis [Unknown]
  - Pneumonia [Unknown]
  - H1N1 influenza [Unknown]
  - Intentional drug misuse [Unknown]
  - Oxygen saturation decreased [Unknown]
  - Memory impairment [Unknown]
  - Fear [Unknown]
  - Hallucination [Unknown]
  - Hallucination, auditory [Unknown]
  - Ear disorder [Unknown]
  - Photopsia [Unknown]
  - Diarrhoea [Unknown]
  - Anger [Unknown]
  - Insomnia [Unknown]
  - Drug withdrawal syndrome [Unknown]
  - Agitation [Unknown]
